FAERS Safety Report 6183256-7 (Version None)
Quarter: 2009Q2

REPORT INFORMATION
  Report Type: 
  Country: None (occurrence: None)
  Receive Date: 20090507
  Receipt Date: 20090429
  Transmission Date: 20091009
  Serious: Yes (Other)
  Sender: FDA-Public Use
  Company Number: SE-AMGEN-STX344875

PATIENT
  Age: 51 Year
  Sex: Female

DRUGS (4)
  1. MIMPARA [Suspect]
     Indication: HYPERPARATHYROIDISM SECONDARY
     Dates: start: 20070501, end: 20090429
  2. PREDNISOLONE [Concomitant]
  3. UNSPECIFIED BETA BLOCKER [Concomitant]
  4. FRAGMIN [Concomitant]

REACTIONS (4)
  - NECROSIS [None]
  - SKIN ULCER [None]
  - VASCULITIS [None]
  - WOUND COMPLICATION [None]
